FAERS Safety Report 7018688-8 (Version None)
Quarter: 2010Q3

REPORT INFORMATION
  Report Type: 
  Country: None (occurrence: None)
  Receive Date: 20100924
  Receipt Date: 20100913
  Transmission Date: 20110219
  Serious: Yes (Disabling)
  Sender: FDA-Public Use
  Company Number: TPA2010A02569

PATIENT
  Age: 55 Year
  Sex: Female
  Weight: 60 kg

DRUGS (3)
  1. ADENURIC (FEBUXOSTAT) [Suspect]
     Indication: GOUT
     Dosage: 80 MG, 1 IN 1 D
     Dates: start: 20100401
  2. COLCHIMAX (CLOCHIINE, TIEMONIUM METHYLSULPHATE, PAPAVER SOMNIFERUM POW [Concomitant]
  3. IRBESARTAN [Concomitant]

REACTIONS (3)
  - CONDITION AGGRAVATED [None]
  - GOUT [None]
  - PYREXIA [None]
